FAERS Safety Report 9132731 (Version 1)
Quarter: 2013Q1

REPORT INFORMATION
  Report Type: Spontaneous
  Country: US (occurrence: US)
  Receive Date: 20130301
  Receipt Date: 20130301
  Transmission Date: 20140127
  Serious: No
  Sender: FDA-Public Use
  Company Number: US-TEVA-388760USA

PATIENT
  Sex: Female

DRUGS (1)
  1. PROGLYCEM [Suspect]
     Route: 048
     Dates: start: 201210

REACTIONS (5)
  - Weight increased [Not Recovered/Not Resolved]
  - Irritability [Not Recovered/Not Resolved]
  - Hirsutism [Not Recovered/Not Resolved]
  - Headache [Unknown]
  - Nausea [Unknown]
